FAERS Safety Report 5130287-1 (Version None)
Quarter: 2006Q4

REPORT INFORMATION
  Report Type: 
  Country: None (occurrence: None)
  Receive Date: 20061013
  Receipt Date: 20060925
  Transmission Date: 20070319
  Serious: Yes (Death, Hospitalization)
  Sender: FDA-Public Use
  Company Number: US200609006782

PATIENT
  Age: 65 Year
  Sex: Female

DRUGS (1)
  1. GEMZAR [Suspect]
     Indication: DRUG USE FOR UNKNOWN INDICATION
     Dosage: INTRAVENOUS
     Route: 042

REACTIONS (10)
  - ASTHENIA [None]
  - DRUG INTOLERANCE [None]
  - FATIGUE [None]
  - HAEMOLYTIC ANAEMIA [None]
  - HYPOAESTHESIA FACIAL [None]
  - LUNG INFECTION [None]
  - MALAISE [None]
  - NEUROLOGICAL SYMPTOM [None]
  - THROMBOTIC MICROANGIOPATHY [None]
  - TONGUE PARALYSIS [None]
